FAERS Safety Report 6330451-X (Version None)
Quarter: 2009Q3

REPORT INFORMATION
  Report Type: 
  Country: None (occurrence: None)
  Receive Date: 20090827
  Receipt Date: 20090820
  Transmission Date: 20100115
  Serious: Yes (Other)
  Sender: FDA-Public Use
  Company Number: US-BAYER-200930571NA

PATIENT
  Age: 21 Year
  Sex: Female

DRUGS (1)
  1. MIRENA [Suspect]
     Indication: DRUG USE FOR UNKNOWN INDICATION
     Dosage: CONTINUOUS
     Route: 015
     Dates: start: 20080901

REACTIONS (6)
  - CYSTITIS [None]
  - LIBIDO DECREASED [None]
  - MIGRAINE [None]
  - NEPHROLITHIASIS [None]
  - TOOTHACHE [None]
  - VULVOVAGINAL MYCOTIC INFECTION [None]
